FAERS Safety Report 5058101-3 (Version None)
Quarter: 2006Q3

REPORT INFORMATION
  Report Type: 
  Country: None (occurrence: None)
  Receive Date: 20060721
  Receipt Date: 20060717
  Transmission Date: 20061208
  Serious: Yes (Other)
  Sender: FDA-Public Use
  Company Number: US-GLAXOSMITHKLINE-A0612644A

PATIENT
  Age: 36 Year
  Sex: Male

DRUGS (3)
  1. REQUIP [Suspect]
     Indication: RESTLESS LEGS SYNDROME
     Route: 048
     Dates: start: 20060101, end: 20060101
  2. MORPHINE [Concomitant]
  3. CYMBALTA [Concomitant]

REACTIONS (1)
  - ANGIONEUROTIC OEDEMA [None]
